FAERS Safety Report 5699339-1 (Version None)
Quarter: 2008Q2

REPORT INFORMATION
  Report Type: 
  Country: None (occurrence: None)
  Receive Date: 20080404
  Receipt Date: 20080326
  Transmission Date: 20081010
  Serious: Yes (Hospitalization)
  Sender: FDA-Public Use
  Company Number: 2008-02090

PATIENT
  Age: 50 Year
  Sex: Female

DRUGS (4)
  1. ALBUTEROL SULFATE + IPRATROPIUM BROMIDE (WATSON LABORATORIES)(IPRATROP [Suspect]
     Indication: ASTHMA
     Dosage: 1 SINGLE BREATHING TREATMENT, RESPIRATORY
     Route: 055
     Dates: start: 20080325, end: 20080325
  2. SYNTHROID [Concomitant]
  3. PROZAC [Concomitant]
  4. SOLU-MEDROL [Concomitant]

REACTIONS (6)
  - CHEST PAIN [None]
  - ELECTROCARDIOGRAM ST SEGMENT DEPRESSION [None]
  - HYPERTHYROIDISM [None]
  - MYOCARDIAL ISCHAEMIA [None]
  - PHARMACEUTICAL PRODUCT COMPLAINT [None]
  - TACHYCARDIA [None]
